FAERS Safety Report 18302008 (Version 1)
Quarter: 2020Q3

REPORT INFORMATION
  Report Type: Spontaneous
  Country: CH (occurrence: CH)
  Receive Date: 20200923
  Receipt Date: 20200923
  Transmission Date: 20201103
  Serious: Yes (Death)
  Sender: FDA-Public Use
  Company Number: CH-BEH-2020122626

PATIENT
  Age: 59 Year
  Sex: Male

DRUGS (3)
  1. CYCLOPHOSPHAMIDE. [Suspect]
     Active Substance: CYCLOPHOSPHAMIDE
     Indication: ACUTE HAEMORRHAGIC LEUKOENCEPHALITIS
     Dosage: 15 MILLIGRAM/KILOGRAM
     Route: 065
  2. HUMAN IMMUNOGLOBULIN (INN) [Suspect]
     Active Substance: HUMAN IMMUNOGLOBULIN G
     Indication: ACUTE HAEMORRHAGIC LEUKOENCEPHALITIS
     Dosage: 0.4 GRAM PER KILOGRAM
     Route: 042
  3. METHYLPREDNISOLONE. [Suspect]
     Active Substance: METHYLPREDNISOLONE
     Indication: ACUTE HAEMORRHAGIC LEUKOENCEPHALITIS
     Dosage: 2 GRAM, QD FOR 3 DAYS FOLLOWED BY TAPERING
     Route: 065

REACTIONS (2)
  - Drug ineffective for unapproved indication [Fatal]
  - Product use in unapproved indication [Fatal]
